FAERS Safety Report 18148460 (Version 2)
Quarter: 2020Q3

REPORT INFORMATION
  Report Type: Report from Study
  Country: None (occurrence: US)
  Receive Date: 20200814
  Receipt Date: 20200917
  Transmission Date: 20201103
  Serious: Yes (Hospitalization, Other)
  Sender: FDA-Public Use
  Company Number: US-ABBVIE-20K-163-3364548-00

PATIENT
  Sex: Female

DRUGS (2)
  1. HUMIRA [Suspect]
     Active Substance: ADALIMUMAB
     Indication: RHEUMATOID ARTHRITIS
     Route: 058
     Dates: start: 20191007, end: 20200831
  2. METHOTREXATE. [Concomitant]
     Active Substance: METHOTREXATE
     Indication: PRODUCT USED FOR UNKNOWN INDICATION

REACTIONS (21)
  - Anaemia [Unknown]
  - Biliary obstruction [Unknown]
  - General physical health deterioration [Unknown]
  - Gait disturbance [Unknown]
  - Gallbladder disorder [Unknown]
  - Arterial occlusive disease [Recovering/Resolving]
  - Depression [Recovering/Resolving]
  - Therapeutic product effect decreased [Unknown]
  - Back pain [Not Recovered/Not Resolved]
  - Chills [Unknown]
  - Cardiac disorder [Unknown]
  - Joint swelling [Not Recovered/Not Resolved]
  - Joint stiffness [Not Recovered/Not Resolved]
  - Coronary artery occlusion [Recovering/Resolving]
  - Arthralgia [Not Recovered/Not Resolved]
  - Pain [Unknown]
  - Asthma [Unknown]
  - Loss of personal independence in daily activities [Unknown]
  - Anxiety [Recovering/Resolving]
  - Pain in extremity [Unknown]
  - Injection site pain [Not Recovered/Not Resolved]
